FAERS Safety Report 8953211 (Version 2)
Quarter: 2013Q4

REPORT INFORMATION
  Report Type: Spontaneous
  Country: GB (occurrence: GB)
  Receive Date: 20121206
  Receipt Date: 20131007
  Transmission Date: 20140711
  Serious: Yes (Disabling)
  Sender: FDA-Public Use
  Company Number: GB-RANBAXY-2012R1-62769

PATIENT
  Age: 14 Year
  Sex: 0
  Weight: 35 kg

DRUGS (2)
  1. TOPIRAMATE [Suspect]
     Indication: EPILEPSY
     Dosage: 115 MG, BID
     Route: 048
     Dates: start: 20040201
  2. EPISENTA PROLONGED RELEASE [Suspect]
     Indication: EPILEPSY
     Dosage: 500 MG, BID
     Route: 048
     Dates: start: 20040501

REACTIONS (1)
  - Cataract [Unknown]
